FAERS Safety Report 24773767 (Version 12)
Quarter: 2025Q2

REPORT INFORMATION
  Report Type: Spontaneous
  Country: JP (occurrence: JP)
  Receive Date: 20241225
  Receipt Date: 20250623
  Transmission Date: 20250717
  Serious: Yes (Other)
  Sender: ASTELLAS
  Company Number: JP-ASTELLAS-2024-AER-024631

PATIENT
  Age: 75 Year
  Sex: Male

DRUGS (18)
  1. XTANDI [Interacting]
     Active Substance: ENZALUTAMIDE
     Indication: Prostate cancer metastatic
     Dosage: AFTER DINNER (NOT IMMEDIATELY AFTER DINNER, BUT AROUND 9:00 PM OR 10:00 PM), BEFORE BED, 2 TABLETS
     Route: 048
     Dates: start: 20241016
  2. XTANDI [Interacting]
     Active Substance: ENZALUTAMIDE
     Dosage: AFTER DINNER, BEFORE BED, 2 TABLETS
     Route: 048
  3. XTANDI [Interacting]
     Active Substance: ENZALUTAMIDE
     Dosage: 2 TABLETS ONCE, AT NIGHT
     Route: 048
     Dates: end: 20250608
  4. MAGNESIUM OXIDE [Interacting]
     Active Substance: MAGNESIUM OXIDE
     Indication: Constipation
     Dosage: MORNING AND EVENING
     Route: 048
  5. MAGNESIUM OXIDE [Interacting]
     Active Substance: MAGNESIUM OXIDE
     Dosage: 1 TABLET IN THE MORNING, AT NOON AND 2 TABLETS AFTER DINNER (IN THE EVENING) IF HE HAD CONSTIPATION
     Route: 048
  6. DEGARELIX [Suspect]
     Active Substance: DEGARELIX
     Indication: Prostate cancer
     Route: 065
     Dates: start: 20240813
  7. SILODOSIN [Suspect]
     Active Substance: SILODOSIN
     Indication: Dysuria
     Dosage: BEFORE BEDTIME
     Route: 048
  8. SILODOSIN [Suspect]
     Active Substance: SILODOSIN
     Dosage: ONE TABLET EACH MORNING AND EVENING
     Route: 048
  9. SILODOSIN [Suspect]
     Active Substance: SILODOSIN
     Route: 048
     Dates: start: 202408
  10. METHYLCOBALAMIN [Suspect]
     Active Substance: METHYLCOBALAMIN
     Indication: Hypoaesthesia
     Dosage: TAKE ONE TABLET AT A TIME AFTER EACH MEAL, MORNING, NOON AND EVENING
     Route: 048
  11. METHYLCOBALAMIN [Suspect]
     Active Substance: METHYLCOBALAMIN
     Indication: Hypoaesthesia
  12. METHYLCOBALAMIN [Suspect]
     Active Substance: METHYLCOBALAMIN
     Indication: Hypoaesthesia
  13. MIROGABALIN BESYLATE [Suspect]
     Active Substance: MIROGABALIN BESYLATE
     Indication: Gait disturbance
     Dosage: MORNING, NOON AND EVENING
     Route: 065
  14. MIROGABALIN BESYLATE [Suspect]
     Active Substance: MIROGABALIN BESYLATE
     Indication: Hypoaesthesia
     Dosage: 2 TIMES AT MORNING AND EVENING
     Route: 065
  15. MIROGABALIN BESYLATE [Suspect]
     Active Substance: MIROGABALIN BESYLATE
     Indication: Hypoaesthesia
  16. MIROGABALIN BESYLATE [Suspect]
     Active Substance: MIROGABALIN BESYLATE
     Indication: Hypoaesthesia
  17. MIYA-BM tablet [Concomitant]
     Indication: Abnormal faeces
     Dosage: EVENING
     Route: 048
     Dates: start: 20241219
  18. MIYA-BM tablet [Concomitant]
     Indication: Constipation
     Dosage: IN THE MORNING AND EVENING
     Route: 048

REACTIONS (53)
  - Colon cancer [Unknown]
  - Syncope [Unknown]
  - Prostatic atrophy [Unknown]
  - Dizziness [Unknown]
  - Prostatic specific antigen increased [Unknown]
  - COVID-19 [Unknown]
  - Taste disorder [Recovering/Resolving]
  - Dry skin [Recovering/Resolving]
  - Constipation [Not Recovered/Not Resolved]
  - Abnormal faeces [Recovering/Resolving]
  - Diarrhoea [Unknown]
  - Infrequent bowel movements [Unknown]
  - Faecal volume decreased [Unknown]
  - Oral discharge [Unknown]
  - Proctalgia [Unknown]
  - Hot flush [Unknown]
  - Anal incontinence [Unknown]
  - Patient dissatisfaction with treatment [Unknown]
  - Dyschezia [Unknown]
  - Somnolence [Unknown]
  - Diverticulum intestinal [Unknown]
  - Benign prostatic hyperplasia [Unknown]
  - Hypoaesthesia [Unknown]
  - Tremor [Unknown]
  - Fall [Unknown]
  - Gait disturbance [Unknown]
  - Flatulence [Unknown]
  - Intervertebral disc protrusion [Unknown]
  - Muscular weakness [Not Recovered/Not Resolved]
  - Weight increased [Unknown]
  - Disturbance in attention [Unknown]
  - Road traffic accident [Unknown]
  - Hypoaesthesia [Not Recovered/Not Resolved]
  - Spinal deformity [Unknown]
  - Abnormal faeces [Not Recovered/Not Resolved]
  - Feeling abnormal [Unknown]
  - Peripheral swelling [Unknown]
  - Paraesthesia [Unknown]
  - Peripheral swelling [Unknown]
  - Nutritional condition abnormal [Unknown]
  - Feeling abnormal [Unknown]
  - Faeces discoloured [Unknown]
  - Ear discomfort [Unknown]
  - Hypoaesthesia [Unknown]
  - Dysaesthesia [Unknown]
  - Hypoaesthesia [Unknown]
  - Drug hypersensitivity [Recovered/Resolved]
  - Fall [Unknown]
  - Limb discomfort [Unknown]
  - Micturition urgency [Unknown]
  - Lymphadenopathy [Unknown]
  - Drug interaction [Unknown]
  - Product dose omission issue [Unknown]

NARRATIVE: CASE EVENT DATE: 20250101
